FAERS Safety Report 16213650 (Version 1)
Quarter: 2019Q2

REPORT INFORMATION
  Report Type: Spontaneous
  Country: SE (occurrence: SE)
  Receive Date: 20190418
  Receipt Date: 20190418
  Transmission Date: 20190711
  Serious: Yes (Hospitalization)
  Sender: FDA-Public Use
  Company Number: PHHY2019SE087055

PATIENT
  Age: 83 Year
  Sex: Female

DRUGS (1)
  1. MOMETASONE [Suspect]
     Active Substance: MOMETASONE
     Indication: NASAL INFLAMMATION
     Dosage: 2 OT, QD (2 DOSER I VARDERA N?SBORRE MORGON OCH KV?LL)
     Route: 045
     Dates: start: 20181009, end: 20181029

REACTIONS (4)
  - Swelling [Not Recovered/Not Resolved]
  - Fatigue [Not Recovered/Not Resolved]
  - Arthralgia [Not Recovered/Not Resolved]
  - Myalgia [Not Recovered/Not Resolved]

NARRATIVE: CASE EVENT DATE: 201810
